FAERS Safety Report 14006116 (Version 2)
Quarter: 2017Q4

REPORT INFORMATION
  Report Type: Spontaneous
  Country: IE (occurrence: IE)
  Receive Date: 20170924
  Receipt Date: 20171013
  Transmission Date: 20180321
  Serious: No
  Sender: FDA-Public Use
  Company Number: IE-BIOGEN-2017BV000302

PATIENT
  Sex: Male

DRUGS (1)
  1. ELOCTA [Suspect]
     Active Substance: EFMOROCTOCOG ALFA
     Indication: IMMUNE TOLERANCE INDUCTION
     Route: 065
     Dates: start: 201704

REACTIONS (1)
  - Off label use [Unknown]
